FAERS Safety Report 6076492-1 (Version None)
Quarter: 2009Q1

REPORT INFORMATION
  Report Type: 
  Country: None (occurrence: None)
  Receive Date: 20090209
  Receipt Date: 20090128
  Transmission Date: 20090719
  Serious: Yes (Other)
  Sender: FDA-Public Use
  Company Number: 2009EN000021

PATIENT
  Age: 10 Year
  Sex: Female

DRUGS (4)
  1. ABELCET [Suspect]
     Indication: DRUG USE FOR UNKNOWN INDICATION
     Dosage: 190 MG; QD; IV
     Route: 042
     Dates: start: 20090124
  2. VANCOMYCIN [Concomitant]
  3. CEFTAZIDIME [Concomitant]
  4. CO-TRIMOXAZOLE [Concomitant]

REACTIONS (5)
  - HALLUCINATION [None]
  - NAUSEA [None]
  - PRURITUS [None]
  - PYREXIA [None]
  - RASH [None]
